FAERS Safety Report 11537962 (Version 5)
Quarter: 2015Q4

REPORT INFORMATION
  Report Type: Report from Study
  Country: BE (occurrence: BE)
  Receive Date: 20150922
  Receipt Date: 20151209
  Transmission Date: 20160304
  Serious: Yes (Hospitalization)
  Sender: FDA-Public Use
  Company Number: BE-ABBVIE-14P-013-1194440-00

PATIENT
  Age: 76 Year
  Sex: Female

DRUGS (15)
  1. DUODOPA [Suspect]
     Active Substance: CARBIDOPA\LEVODOPA
     Dosage: AM DOSE= 1.8ML, CONTIN DOSE= 1.5ML/H DURING 16HRS, EXTRA DOSE=1ML
     Route: 050
     Dates: start: 20141218, end: 20150508
  2. DUODOPA [Suspect]
     Active Substance: CARBIDOPA\LEVODOPA
     Dosage: AM DOSE=1.8ML, CD=1.7ML/H FOR 16HRS AND ED=1ML
     Route: 050
     Dates: start: 20150629, end: 20150701
  3. RASAGILINE [Concomitant]
     Active Substance: RASAGILINE
     Indication: PARKINSON^S DISEASE
     Dosage: DURING THE NIGHT
  4. DUODOPA [Suspect]
     Active Substance: CARBIDOPA\LEVODOPA
     Dosage: AM=1.8ML; CD=1.9ML/H DURING 16HRS; ED=1ML
     Route: 050
     Dates: start: 20151028, end: 20151102
  5. DUODOPA [Suspect]
     Active Substance: CARBIDOPA\LEVODOPA
     Dosage: AM DOSE=1.8ML, CD=1.3ML/H FOR 16HRS, ED=1.5ML
     Route: 050
     Dates: start: 20130314
  6. DUODOPA [Suspect]
     Active Substance: CARBIDOPA\LEVODOPA
     Dosage: AM DOSE= 1.8ML, CONTIN DOSE= 1.4ML/H DURING 16HRS, EXTRA DOSE= 1ML
     Route: 050
     Dates: start: 20140923, end: 20141210
  7. DUODOPA [Suspect]
     Active Substance: CARBIDOPA\LEVODOPA
     Indication: PARKINSON^S DISEASE
     Dosage: AM DOSE=2.5ML, CD=1.6ML/H FOR 16HRS AND ED=1.5ML
     Route: 050
     Dates: start: 20120319, end: 20120403
  8. DUODOPA [Suspect]
     Active Substance: CARBIDOPA\LEVODOPA
     Dosage: DOSAGE CONTINUOUSLY MONITORED AND ADJUSTED
     Route: 050
     Dates: start: 20120403, end: 20130314
  9. DUODOPA [Suspect]
     Active Substance: CARBIDOPA\LEVODOPA
     Dosage: AM DOSE=1.8ML, CD=1.8ML/H FOR 16HRS AND ED=1ML
     Route: 050
     Dates: start: 20150914, end: 20151028
  10. DUODOPA [Suspect]
     Active Substance: CARBIDOPA\LEVODOPA
     Dosage: AM=1.8ML; CD=2.2ML/H FOR 16HRS; ED=1.5ML
     Route: 050
     Dates: start: 20151105
  11. DUODOPA [Suspect]
     Active Substance: CARBIDOPA\LEVODOPA
     Dosage: AM=1.8ML/ CD=2ML/HR DURING 16HRS; ED=1ML
     Route: 050
     Dates: start: 20151102, end: 20151105
  12. DUODOPA [Suspect]
     Active Substance: CARBIDOPA\LEVODOPA
     Dosage: AM: 1.8ML; CD:1.3ML/H FOR 16HRS; ED:1ML
     Route: 050
     Dates: start: 20141210, end: 20141218
  13. DUODOPA [Suspect]
     Active Substance: CARBIDOPA\LEVODOPA
     Dosage: AM DOSE=1.8ML, CD=1.6ML/H FOR 16HRS AND ED:1ML
     Route: 050
     Dates: start: 20150701, end: 20150914
  14. DUODOPA [Suspect]
     Active Substance: CARBIDOPA\LEVODOPA
     Dosage: AM DOSE=1.8ML, CD=1.2ML/H FOR 16HRS AND ED=1.8ML
     Route: 050
     Dates: end: 20140923
  15. DUODOPA [Suspect]
     Active Substance: CARBIDOPA\LEVODOPA
     Dosage: UNKNOWN
     Route: 050
     Dates: start: 20150508, end: 20150629

REACTIONS (33)
  - Psychiatric decompensation [Unknown]
  - Mobility decreased [Recovering/Resolving]
  - Dyskinesia [Not Recovered/Not Resolved]
  - Depression [Not Recovered/Not Resolved]
  - Freezing phenomenon [Unknown]
  - Pain in extremity [Unknown]
  - Myalgia [Unknown]
  - Gait disturbance [Not Recovered/Not Resolved]
  - Dystonia [Unknown]
  - Freezing phenomenon [Not Recovered/Not Resolved]
  - Hypoaesthesia [Unknown]
  - Catheter site discharge [Unknown]
  - Panic attack [Not Recovered/Not Resolved]
  - Device deployment issue [Recovered/Resolved]
  - Fatigue [Not Recovered/Not Resolved]
  - Pain [Unknown]
  - Emotional disorder [Unknown]
  - Dyskinesia [Recovered/Resolved]
  - Stress [Unknown]
  - Device issue [Unknown]
  - Device occlusion [Unknown]
  - Asthenia [Unknown]
  - Tremor [Not Recovered/Not Resolved]
  - Balance disorder [Not Recovered/Not Resolved]
  - Granuloma [Recovered/Resolved]
  - Drug ineffective [Unknown]
  - Muscle rigidity [Unknown]
  - Muscle spasms [Unknown]
  - Nervousness [Not Recovered/Not Resolved]
  - Asthenia [Recovered/Resolved]
  - Panic disorder [Unknown]
  - Poor quality sleep [Unknown]
  - Anxiety [Unknown]

NARRATIVE: CASE EVENT DATE: 20150624
